FAERS Safety Report 14179586 (Version 1)
Quarter: 2017Q4

REPORT INFORMATION
  Report Type: Spontaneous
  Country: IT (occurrence: IT)
  Receive Date: 20171110
  Receipt Date: 20171110
  Transmission Date: 20180321
  Serious: Yes (Hospitalization, Other)
  Sender: FDA-Public Use
  Company Number: IT-INDIVIOR LIMITED-INDV-105976-2017

PATIENT
  Age: 29 Year
  Sex: Male

DRUGS (14)
  1. VALPROIC ACID. [Suspect]
     Active Substance: VALPROIC ACID
     Indication: AGGRESSION
     Dosage: 1000MG/DAY
     Route: 065
  2. BENZODIAZEPINE DERIVATIVES [Suspect]
     Active Substance: BENZODIAZEPINE
     Indication: PRODUCT USED FOR UNKNOWN INDICATION
     Dosage: UNK
     Route: 065
  3. HALOPERIDOL DECANOATE. [Concomitant]
     Active Substance: HALOPERIDOL DECANOATE
     Indication: BIPOLAR DISORDER
     Dosage: 150MG, 1 IN 28 DAYS
     Route: 065
  4. ANTIPSYCHOTICS [Concomitant]
     Active Substance: UNSPECIFIED INGREDIENT
     Indication: PRODUCT USED FOR UNKNOWN INDICATION
     Dosage: UNK
     Route: 065
  5. VALPROIC ACID. [Suspect]
     Active Substance: VALPROIC ACID
     Dosage: 1800MG/DAY
     Route: 065
  6. CLOTIAPINE [Concomitant]
     Active Substance: CLOTHIAPINE
     Dosage: 120MG PER DAY
     Route: 048
  7. CHLORPROMAZINE. [Concomitant]
     Active Substance: CHLORPROMAZINE
     Indication: AGGRESSION
     Dosage: 100MG PER DAY
     Route: 065
  8. BUPRENORPHINE. [Suspect]
     Active Substance: BUPRENORPHINE
     Indication: DRUG ABUSE
     Dosage: UNK
     Route: 065
  9. OPIOIDS [Suspect]
     Active Substance: UNSPECIFIED INGREDIENT
     Indication: PRODUCT USED FOR UNKNOWN INDICATION
     Dosage: UNK
     Route: 065
  10. COCAINE [Suspect]
     Active Substance: COCAINE
     Indication: PRODUCT USED FOR UNKNOWN INDICATION
     Dosage: UNK
     Route: 065
  11. LORAZEPAM. [Concomitant]
     Active Substance: LORAZEPAM
     Indication: AGGRESSION
     Dosage: 7.5MG, 1 IN 1 DAYS
     Route: 065
  12. FLURAZEPAM [Concomitant]
     Active Substance: FLURAZEPAM\FLURAZEPAM HYDROCHLORIDE
     Indication: AGGRESSION
     Dosage: 30MG PER DAY
     Route: 048
  13. CLOTIAPINE [Concomitant]
     Active Substance: CLOTHIAPINE
     Indication: AGGRESSION
     Dosage: 120MG PER DAY
     Route: 030
  14. HALOPERIDOL. [Concomitant]
     Active Substance: HALOPERIDOL
     Indication: AGGRESSION
     Dosage: 6MG PER DAY
     Route: 065

REACTIONS (3)
  - Hyperammonaemia [Recovered/Resolved]
  - Drug abuse [Unknown]
  - Drug use disorder [Unknown]
